FAERS Safety Report 8812183 (Version 3)
Quarter: 2013Q2

REPORT INFORMATION
  Report Type: Spontaneous
  Country: ES (occurrence: ES)
  Receive Date: 20120927
  Receipt Date: 20130415
  Transmission Date: 20140414
  Serious: Yes (Hospitalization)
  Sender: FDA-Public Use
  Company Number: ES-ELI_LILLY_AND_COMPANY-ES201208007424

PATIENT
  Age: 55 Year
  Sex: Female
  Weight: 45 kg

DRUGS (9)
  1. FORSTEO [Suspect]
     Indication: OSTEOPOROSIS
     Dosage: 20 UG, QD
     Route: 058
     Dates: start: 20120419, end: 20121222
  2. PARACETAMOL [Concomitant]
     Indication: ANALGESIC THERAPY
     Dosage: 650 MG, BID
     Route: 048
  3. URBASON                                 /GFR/ [Concomitant]
     Dosage: 4 MG, QD
     Route: 048
  4. PAROXETINE [Concomitant]
     Indication: DEPRESSION
     Dosage: 20 MG, QD
     Route: 048
  5. GABAPENTINE [Concomitant]
     Indication: NEURALGIA
     Dosage: 300 MG, BID
  6. OMEPRAZOL [Concomitant]
     Indication: PROPHYLAXIS
     Dosage: 1 DF, QD
     Route: 048
  7. SIMVASTATINE [Concomitant]
     Indication: DYSLIPIDAEMIA
     Dosage: 40 MG, QD
     Route: 048
  8. TRAMADOL [Concomitant]
     Indication: ANALGESIC THERAPY
     Dosage: UNK, PRN
     Route: 048
  9. EUTIROX [Concomitant]
     Indication: HYPOTHYROIDISM
     Dosage: 50 MG, QD
     Route: 048

REACTIONS (11)
  - Arthritis [Recovering/Resolving]
  - Respiratory failure [Recovering/Resolving]
  - Fall [Recovered/Resolved]
  - Arthropathy [Unknown]
  - Limb injury [Unknown]
  - Gait disturbance [Unknown]
  - Contusion [Recovered/Resolved]
  - Scoliosis [Not Recovered/Not Resolved]
  - Implant site reaction [Not Recovered/Not Resolved]
  - Limb injury [Not Recovered/Not Resolved]
  - Bone pain [Not Recovered/Not Resolved]
